FAERS Safety Report 5489057-7 (Version None)
Quarter: 2007Q4

REPORT INFORMATION
  Report Type: 
  Country: None (occurrence: None)
  Receive Date: 20071018
  Receipt Date: 20071010
  Transmission Date: 20080405
  Serious: Yes (Other)
  Sender: FDA-Public Use
  Company Number: PHBS2007JP07392

PATIENT
  Age: 56 Year
  Sex: Female

DRUGS (5)
  1. TAXOTERE [Concomitant]
     Indication: METASTASES TO BONE
     Dosage: 45 MG/DAY
     Route: 041
     Dates: start: 20010501
  2. ARIMIDEX [Concomitant]
     Indication: BREAST CANCER
     Dosage: 1 MG/DAY
     Route: 048
     Dates: start: 20010501
  3. FARESTON ^SCHERING-PLOUGH^ [Concomitant]
     Indication: BREAST CANCER
     Dosage: 120 MG/DAY
     Route: 048
     Dates: start: 20010501
  4. ZOMETA [Suspect]
     Indication: BONE PAIN
     Dosage: 4 MG/MONTH
     Route: 041
     Dates: start: 20061220, end: 20070202
  5. AREDIA [Suspect]
     Route: 042
     Dates: start: 20060401, end: 20060501

REACTIONS (6)
  - BONE DISORDER [None]
  - OSTEOMYELITIS [None]
  - OSTEONECROSIS [None]
  - PATHOLOGICAL FRACTURE [None]
  - SINUS DISORDER [None]
  - SURGERY [None]
